FAERS Safety Report 5269428-4 (Version None)
Quarter: 2007Q1

REPORT INFORMATION
  Report Type: 
  Country: None (occurrence: None)
  Receive Date: 20070320
  Receipt Date: 20070313
  Transmission Date: 20070707
  Serious: Yes (Life-Threatening, Hospitalization, Disabling, Other)
  Sender: FDA-Public Use
  Company Number: ES-BAYER-200711344GDS

PATIENT
  Age: 64 Year
  Sex: Male
  Weight: 89 kg

DRUGS (8)
  1. VARDENAFIL OR PLACEBO [Suspect]
     Indication: ERECTILE DYSFUNCTION
     Route: 048
     Dates: start: 20061203, end: 20070302
  2. METFORMIN HCL [Concomitant]
     Indication: DIABETES MELLITUS
     Route: 048
     Dates: start: 20060203
  3. GEMFIBROZIL [Concomitant]
     Indication: HYPERLIPIDAEMIA
     Route: 048
     Dates: start: 20060915
  4. CLAVERSAL [Concomitant]
     Indication: CROHN'S DISEASE
     Route: 048
     Dates: start: 20060921
  5. DIOVANE [Concomitant]
     Indication: HYPERTENSION
     Route: 048
     Dates: start: 20060215
  6. OMEPRAZOLE [Concomitant]
     Indication: CROHN'S DISEASE
     Route: 048
     Dates: start: 20060720
  7. VALSARTAN [Concomitant]
     Indication: DRUG USE FOR UNKNOWN INDICATION
  8. TIMOLOL MALEATE [Concomitant]
     Indication: GLAUCOMA

REACTIONS (1)
  - ANGINA PECTORIS [None]
